FAERS Safety Report 4997642-1 (Version None)
Quarter: 2006Q1

REPORT INFORMATION
  Report Type: 
  Country: None (occurrence: None)
  Receive Date: 20060315
  Receipt Date: 20060116
  Transmission Date: 20060701
  Serious: Yes (Other)
  Sender: FDA-Public Use
  Company Number: 432522

PATIENT
  Age: 74 Year
  Sex: Female

DRUGS (7)
  1. BONIVA [Suspect]
     Indication: OSTEOPOROSIS
     Dosage: 150 MG 1 PER MONTH ORAL
     Route: 048
     Dates: start: 20060102
  2. SYNTHROID [Concomitant]
  3. CYANOCOBALAMIN [Concomitant]
  4. GLUCOPHAGE XR [Concomitant]
  5. LASIX [Concomitant]
  6. ZESTRIL [Concomitant]
  7. VOLTAREN [Concomitant]

REACTIONS (3)
  - ABDOMINAL PAIN [None]
  - BLOOD GLUCOSE INCREASED [None]
  - DYSPEPSIA [None]
